FAERS Safety Report 5478114-7 (Version None)
Quarter: 2007Q4

REPORT INFORMATION
  Report Type: 
  Country: None (occurrence: None)
  Receive Date: 20071005
  Receipt Date: 20061017
  Transmission Date: 20080405
  Serious: No
  Sender: FDA-Public Use
  Company Number: US-BRISTOL-MYERS SQUIBB COMPANY-13543137

PATIENT
  Age: 58 Year
  Sex: Female

DRUGS (5)
  1. AVAPRO [Suspect]
     Indication: HYPERTENSION
     Dates: start: 20060401, end: 20060601
  2. LEVOTHYROXINE SODIUM [Suspect]
     Indication: THYROID THERAPY
     Dosage: LEVOTHROID:175 MCG QD PO FROM 13-SEP-2006 TO 14-SEP-2006;150 MCG FROM 15-SEP-2006 AND CONTINUING.
     Route: 048
     Dates: start: 20050601, end: 20060912
  3. LEVOTHYROXINE SODIUM [Suspect]
     Route: 048
     Dates: start: 20060913, end: 20060914
  4. LEVOTHYROXINE SODIUM [Suspect]
     Route: 048
     Dates: start: 20060915
  5. ACEON [Concomitant]

REACTIONS (2)
  - BLISTER [None]
  - GASTROOESOPHAGEAL REFLUX DISEASE [None]
